FAERS Safety Report 8237581 (Version 2)
Quarter: 2013Q4

REPORT INFORMATION
  Report Type: Report from Study
  Country: US (occurrence: US)
  Receive Date: 20111109
  Receipt Date: 20131211
  Transmission Date: 20140711
  Serious: Yes (Death)
  Sender: FDA-Public Use
  Company Number: US-ALEXION PHARMACEUTICALS INC.-A201101657

PATIENT
  Sex: Male

DRUGS (2)
  1. SOLIRIS [Suspect]
     Indication: BONE MARROW TRANSPLANT
     Dosage: UNK
     Route: 042
     Dates: start: 20110809, end: 20110809
  2. SOLIRIS [Suspect]
     Indication: OFF LABEL USE

REACTIONS (4)
  - Graft versus host disease [Fatal]
  - Thrombotic microangiopathy [Fatal]
  - Multi-organ failure [Fatal]
  - Off label use [Unknown]
